FAERS Safety Report 21615850 (Version 1)
Quarter: 2022Q4

REPORT INFORMATION
  Report Type: Spontaneous
  Country: CN (occurrence: CN)
  Receive Date: 20221118
  Receipt Date: 20221118
  Transmission Date: 20230113
  Serious: Yes (Hospitalization)
  Sender: FDA-Public Use
  Company Number: None

PATIENT
  Age: 68 Year
  Sex: Male
  Weight: 77.5 kg

DRUGS (2)
  1. CYCLOPHOSPHAMIDE [Suspect]
     Active Substance: CYCLOPHOSPHAMIDE
     Indication: Chemotherapy
     Dosage: 560 MG ONCE IN SEVEN DAYS, DILUTE WITH 500 ML 0.9% SODIUM CHLORIDE QW
     Route: 041
     Dates: start: 20221002, end: 20221017
  2. SODIUM CHLORIDE [Suspect]
     Active Substance: SODIUM CHLORIDE
     Indication: Medication dilution
     Dosage: 500 ML, QW, USED TO DILUTE WITH 560 MG CYCLOPHOSPHAMIDE
     Route: 041
     Dates: start: 20221002, end: 20221017

REACTIONS (2)
  - Jaundice [Recovering/Resolving]
  - Hepatic function abnormal [Recovering/Resolving]

NARRATIVE: CASE EVENT DATE: 20221017
